FAERS Safety Report 7321531-0 (Version None)
Quarter: 2011Q1

REPORT INFORMATION
  Report Type: 
  Country: None (occurrence: None)
  Receive Date: 20110228
  Receipt Date: 20100315
  Transmission Date: 20110831
  Serious: No
  Sender: FDA-Public Use
  Company Number: A0850231A

PATIENT
  Sex: Female

DRUGS (2)
  1. LYSINE [Concomitant]
  2. VALTREX [Suspect]
     Dosage: 2CAPL TWICE PER DAY
     Route: 048

REACTIONS (1)
  - DRUG INEFFECTIVE [None]
